FAERS Safety Report 6384516-7 (Version None)
Quarter: 2009Q4

REPORT INFORMATION
  Report Type: 
  Country: None (occurrence: None)
  Receive Date: 20091001
  Receipt Date: 20090918
  Transmission Date: 20100525
  Serious: Yes (Other)
  Sender: FDA-Public Use
  Company Number: US-JNJFOC-20090906322

PATIENT
  Age: 2 Month
  Sex: Male
  Weight: 5.44 kg

DRUGS (3)
  1. TYLENOL (CAPLET) [Suspect]
     Route: 048
  2. TYLENOL (CAPLET) [Suspect]
     Indication: PYREXIA
     Dosage: 40 MG EVER 4-5 HOURS FOR A TOTAL OF 3-5 DOSES
     Route: 048
  3. VACCINATIONS [Concomitant]

REACTIONS (4)
  - DRUG INEFFECTIVE [None]
  - MALAISE [None]
  - RESPIRATORY TRACT CONGESTION [None]
  - TRANSMISSION OF AN INFECTIOUS AGENT VIA A MEDICINAL PRODUCT [None]
